FAERS Safety Report 9294878 (Version 1)
Quarter: 2013Q1

REPORT INFORMATION
  Report Type: Spontaneous
  Country: US (occurrence: None)
  Receive Date: 20121227
  Receipt Date: 20121227
  Transmission Date: 20140127
  Serious: Yes (Other)
  Sender: FDA-Public Use
  Company Number: PHEH2012US020845

PATIENT
  Age: 54 Year
  Sex: Female

DRUGS (7)
  1. CLOZAPINE [Suspect]
     Indication: SCHIZOPHRENIA, PARANOID TYPE
  2. GABAPENTIN (GABAPENTIN) [Suspect]
  3. DIVALPROEX SODIUM [Suspect]
  4. OLANZAPINE (OLANZAPINE) [Suspect]
  5. GUAIFENESIN [Concomitant]
  6. ALENDRONATE SODIUM (ALENDRONATE SODIUM) (ALENDRONATE SODIUM) [Concomitant]
  7. POLYETH GLYCERIN POWDER (POLYETH GLYCERIN POWDER) [Concomitant]

REACTIONS (4)
  - Delusion [None]
  - Hallucination, auditory [None]
  - Fear [None]
  - Drug ineffective [None]
